FAERS Safety Report 6597948-9 (Version None)
Quarter: 2010Q1

REPORT INFORMATION
  Report Type: 
  Country: None (occurrence: None)
  Receive Date: 20100223
  Receipt Date: 20091215
  Transmission Date: 20100710
  Serious: No
  Sender: FDA-Public Use
  Company Number: US-ALLERGAN-0917244US

PATIENT
  Age: 51 Year
  Sex: Female

DRUGS (8)
  1. BOTOX [Suspect]
     Indication: TORTICOLLIS
     Dosage: 100 UNITS, SINGLE
     Route: 030
     Dates: start: 20091119, end: 20091119
  2. FOSAMAX [Concomitant]
  3. ZOLOFT [Concomitant]
  4. HYDROCHLOROTHIAZIDE [Concomitant]
  5. PROPRANOLOL HYDROCHLORIDE [Concomitant]
  6. XANAX [Concomitant]
  7. AMBIEN [Concomitant]
  8. LIPITOR [Concomitant]

REACTIONS (2)
  - INJECTION SITE PAIN [None]
  - PAIN IN EXTREMITY [None]
